FAERS Safety Report 9180606 (Version 1)
Quarter: 2013Q1

REPORT INFORMATION
  Report Type: Spontaneous
  Country: AU (occurrence: None)
  Receive Date: 20130320
  Receipt Date: 20130320
  Transmission Date: 20140127
  Serious: Yes (Hospitalization, Other)
  Sender: FDA-Public Use
  Company Number: 2013000045

PATIENT
  Age: 79 Year
  Sex: Male

DRUGS (9)
  1. ACEON [Suspect]
  2. SAXAGLIPTIN [Suspect]
     Dates: start: 20121015, end: 20130121
  3. NOVOMIX [Suspect]
     Route: 058
     Dates: start: 20121031
  4. NOVORAPID [Suspect]
     Route: 058
  5. ASPIRIN [Concomitant]
  6. NICORANDIL [Concomitant]
  7. TRIMETAZIDINE [Concomitant]
  8. RANOLAZINE HYDROCHLORIDE [Concomitant]
  9. IVABRADINE [Concomitant]

REACTIONS (6)
  - Cardiac failure [None]
  - Dehydration [None]
  - Blood creatinine increased [None]
  - Blood urea increased [None]
  - Hyperkalaemia [None]
  - Fluid retention [None]
